FAERS Safety Report 24406587 (Version 1)
Quarter: 2024Q4

REPORT INFORMATION
  Report Type: Spontaneous
  Country: US (occurrence: US)
  Receive Date: 20241007
  Receipt Date: 20241007
  Transmission Date: 20250115
  Serious: No
  Sender: MERCK
  Company Number: US-009507513-2409USA008221

PATIENT

DRUGS (1)
  1. WINREVAIR [Suspect]
     Active Substance: SOTATERCEPT-CSRK
     Dosage: 60 MILLIGRAM, (1.1ML (60MG)/3 WEEKS)

REACTIONS (2)
  - Diarrhoea [Unknown]
  - Device use error [Unknown]

NARRATIVE: CASE EVENT DATE: 20240919
